FAERS Safety Report 8470533-X (Version None)
Quarter: 2012Q2

REPORT INFORMATION
  Report Type: 
  Country: None (occurrence: None)
  Receive Date: 20120627
  Receipt Date: 20120615
  Transmission Date: 20120825
  Serious: Yes (Hospitalization)
  Sender: FDA-Public Use
  Company Number: TR-ELI_LILLY_AND_COMPANY-TR201206005093

PATIENT
  Sex: Male
  Weight: 74 kg

DRUGS (9)
  1. NOVALGINE [Concomitant]
     Indication: ODYNOPHAGIA
     Dosage: UNK
     Dates: start: 20120604
  2. PEMETREXED [Suspect]
     Indication: NON-SMALL CELL LUNG CANCER STAGE III
     Dosage: 500 MG/M2, Q21
     Route: 042
     Dates: start: 20120521
  3. DEXAMETHASONE [Concomitant]
     Indication: PROPHYLAXIS
     Dosage: UNK
  4. VITAMIN B-12 [Concomitant]
     Indication: PROPHYLAXIS
     Dosage: UNK
  5. ANTEPSIN [Concomitant]
     Indication: MUCOSAL INFLAMMATION
     Dosage: UNK
     Dates: start: 20120528
  6. CISPLATIN [Suspect]
     Indication: NON-SMALL CELL LUNG CANCER STAGE III
     Dosage: 75 MG/M2, Q21
     Route: 042
     Dates: start: 20120521
  7. RADIATION [Suspect]
     Indication: NON-SMALL CELL LUNG CANCER STAGE III
     Dosage: 200 CGY, UNKNOWN
     Route: 065
     Dates: start: 20120521
  8. FOLIC ACID [Concomitant]
     Indication: PROPHYLAXIS
     Dosage: UNK
  9. MIKOSTATIN [Concomitant]
     Indication: MUCOSAL INFLAMMATION
     Dosage: UNK
     Dates: start: 20120604, end: 20120611

REACTIONS (3)
  - WEIGHT DECREASED [None]
  - LEUKOPENIA [None]
  - LYMPHOPENIA [None]
